FAERS Safety Report 8818008 (Version 2)
Quarter: 2012Q4

REPORT INFORMATION
  Report Type: 
  Country: AU (occurrence: AU)
  Receive Date: 20121001
  Receipt Date: 20121019
  Transmission Date: 20130627
  Serious: Yes (Death)
  Sender: FDA-Public Use
  Company Number: AU-B.I. PHARMACEUTICALS,INC./RIDGEFIELD-2012-AU-01688AU

PATIENT
  Sex: Male
  Weight: 98.2 kg

DRUGS (4)
  1. PRADAXA [Suspect]
     Indication: CEREBROVASCULAR ACCIDENT PROPHYLAXIS
     Dosage: 220 mg
     Dates: start: 20110929, end: 20120316
  2. PRADAXA [Suspect]
     Indication: ATRIAL FIBRILLATION
  3. PROTON PUMP INHIBITOR / H2 BLOCKER [Concomitant]
  4. PROTON PUMP INHIBITOR / H2 BLOCKER [Concomitant]

REACTIONS (2)
  - Death [Fatal]
  - Renal impairment [Unknown]
